FAERS Safety Report 7460085-5 (Version None)
Quarter: 2011Q2

REPORT INFORMATION
  Report Type: 
  Country: None (occurrence: None)
  Receive Date: 20110505
  Receipt Date: 20110422
  Transmission Date: 20111010
  Serious: Yes (Hospitalization)
  Sender: FDA-Public Use
  Company Number: PHHO2011LT07102

PATIENT
  Sex: Female
  Weight: 72 kg

DRUGS (8)
  1. TORSEMIDE [Concomitant]
     Indication: CARDIAC FAILURE
     Dosage: 10 MG, QID
     Route: 048
     Dates: start: 20050101
  2. BLINDED ALISKIREN [Suspect]
     Indication: CARDIAC FAILURE CHRONIC
     Dosage: LEVEL 2
     Route: 048
     Dates: start: 20100104
  3. COMPARATOR ENALAPRIL [Suspect]
     Indication: CARDIAC FAILURE CHRONIC
     Route: 048
  4. CARVEDILOL [Concomitant]
     Indication: CARDIAC FAILURE
     Dosage: 25 MG, BID
     Route: 048
     Dates: start: 20050101
  5. BLINDED ENALAPRIL [Suspect]
     Indication: CARDIAC FAILURE CHRONIC
     Dosage: LEVEL 2
     Route: 048
     Dates: start: 20100104
  6. TRIMETAZIDINE [Concomitant]
     Indication: MYOCARDIAL ISCHAEMIA
     Dosage: 35 MG, BID
     Route: 048
     Dates: start: 20091105
  7. ALISKIREN [Suspect]
     Indication: CARDIAC FAILURE CHRONIC
     Route: 048
  8. BLINDED NO TREATMENT RECEIVED [Suspect]
     Indication: CARDIAC FAILURE CHRONIC
     Dosage: LEVEL 2
     Route: 048
     Dates: start: 20100104

REACTIONS (1)
  - BRONCHITIS [None]
